FAERS Safety Report 5514719-2 (Version None)
Quarter: 2007Q4

REPORT INFORMATION
  Report Type: 
  Country: None (occurrence: None)
  Receive Date: 20071113
  Receipt Date: 20071101
  Transmission Date: 20080405
  Serious: Yes (Other)
  Sender: FDA-Public Use
  Company Number: US-PFIZER INC-2007092497

PATIENT
  Sex: Male
  Weight: 112.5 kg

DRUGS (5)
  1. DILANTIN [Suspect]
     Indication: EPILEPSY
  2. DETROL [Suspect]
     Indication: PROSTATE CANCER
  3. QUINAPRIL HCL [Suspect]
     Indication: HYPERTENSION
  4. TAMSULOSIN HCL [Suspect]
     Indication: PROSTATE CANCER
  5. PHENOBARBITAL TAB [Suspect]

REACTIONS (5)
  - DIZZINESS [None]
  - EPILEPTIC AURA [None]
  - HYPERTENSION [None]
  - LETHARGY [None]
  - PROSTATE CANCER [None]
